FAERS Safety Report 11122681 (Version 1)
Quarter: 2015Q2

REPORT INFORMATION
  Report Type: Spontaneous
  Country: US (occurrence: None)
  Receive Date: 20150518
  Receipt Date: 20150518
  Transmission Date: 20150821
  Serious: No
  Sender: FDA-Public Use
  Company Number: None

PATIENT
  Age: 4 Year
  Sex: Male
  Weight: 25.4 kg

DRUGS (5)
  1. ALBUTEROL SULFATE. [Suspect]
     Active Substance: ALBUTEROL SULFATE
     Indication: COUGH
     Route: 055
     Dates: start: 20150316, end: 20150515
  2. BUDESONIDE. [Concomitant]
     Active Substance: BUDESONIDE
  3. CHILDREN^S ALLERGY RELIEF [Concomitant]
  4. LILCRITTERS GUMMY VITES [Concomitant]
  5. ALBUTEROL SULFATE. [Suspect]
     Active Substance: ALBUTEROL SULFATE
     Indication: WHEEZING
     Route: 055
     Dates: start: 20150316, end: 20150515

REACTIONS (1)
  - Aggression [None]

NARRATIVE: CASE EVENT DATE: 20150514
